FAERS Safety Report 5494905-0 (Version None)
Quarter: 2007Q4

REPORT INFORMATION
  Report Type: 
  Country: None (occurrence: None)
  Receive Date: 20071024
  Receipt Date: 20071018
  Transmission Date: 20080405
  Serious: Yes (Other)
  Sender: FDA-Public Use
  Company Number: US-ASTRAZENECA-2007UW24154

PATIENT
  Age: 68 Year
  Sex: Female
  Weight: 63.5 kg

DRUGS (3)
  1. CRESTOR [Suspect]
     Indication: BLOOD CHOLESTEROL INCREASED
     Route: 048
  2. LOPRESSOR [Concomitant]
  3. INHALERS [Concomitant]
     Route: 055

REACTIONS (1)
  - MYOCARDIAL INFARCTION [None]
